FAERS Safety Report 6357014-4 (Version None)
Quarter: 2009Q3

REPORT INFORMATION
  Report Type: 
  Country: None (occurrence: None)
  Receive Date: 20090915
  Receipt Date: 20090908
  Transmission Date: 20100115
  Serious: Yes (Other)
  Sender: FDA-Public Use
  Company Number: CA-AMGEN-KDL349346

PATIENT
  Sex: Female
  Weight: 42.7 kg

DRUGS (8)
  1. ENBREL [Suspect]
     Indication: RHEUMATOID ARTHRITIS
     Dates: start: 20090513, end: 20090728
  2. ASAPHEN [Concomitant]
  3. LIPITOR [Concomitant]
     Dates: end: 20090601
  4. FOLIC ACID [Concomitant]
  5. CITALOPRAM HYDROBROMIDE [Concomitant]
  6. METHOTREXATE [Concomitant]
     Route: 058
     Dates: end: 20090601
  7. DESYREL [Concomitant]
  8. DIOVAN [Concomitant]

REACTIONS (15)
  - CHILLS [None]
  - DECREASED APPETITE [None]
  - DEHYDRATION [None]
  - DIARRHOEA [None]
  - DIZZINESS [None]
  - FEELING COLD [None]
  - FEELING HOT [None]
  - HEADACHE [None]
  - NAUSEA [None]
  - NERVOUSNESS [None]
  - NIGHT SWEATS [None]
  - PANIC ATTACK [None]
  - PARAESTHESIA [None]
  - PRESYNCOPE [None]
  - SINUS HEADACHE [None]
